FAERS Safety Report 10646638 (Version 2)
Quarter: 2014Q4

REPORT INFORMATION
  Report Type: Spontaneous
  Country: US (occurrence: US)
  Receive Date: 20141211
  Receipt Date: 20141218
  Transmission Date: 20150529
  Serious: Yes (Hospitalization, Other)
  Sender: FDA-Public Use
  Company Number: US-PFIZER INC-2014336980

PATIENT
  Age: 60 Year
  Sex: Female
  Weight: 110.4 kg

DRUGS (24)
  1. ASPIRIN. [Concomitant]
     Active Substance: ASPIRIN
     Dosage: 81 MG, UNK
     Route: 048
  2. DIABETA [Concomitant]
     Active Substance: GLYBURIDE
     Dosage: 5 MG, DAILY (5MG TABLET: TAKE 5 MG BY MOUTH DAILY (WITH BREAKFAST))
     Route: 048
  3. ANAPROX [Concomitant]
     Active Substance: NAPROXEN SODIUM
     Dosage: 550 MG, AS NEEDED (TAKE 550 MG BY MOUTH EVERY 12 HOURS AS NEEDED)
     Route: 048
  4. GABAPENTIN. [Concomitant]
     Active Substance: GABAPENTIN
     Dosage: 300 MG, 3X/DAY
     Route: 048
  5. TYLENOL [Concomitant]
     Active Substance: ACETAMINOPHEN
     Dosage: 325 MG, UNK (EVERY 4 HOURS)
     Route: 048
  6. AROMASIN [Suspect]
     Active Substance: EXEMESTANE
     Dosage: UNK
  7. DITROPAN [Concomitant]
     Active Substance: OXYBUTYNIN CHLORIDE
     Dosage: 5 MG, 3X/DAY
     Route: 048
  8. METOPROLOL [Concomitant]
     Active Substance: METOPROLOL
     Dosage: UNK
  9. LANTUS [Concomitant]
     Active Substance: INSULIN GLARGINE
     Dosage: 100 MG/ML
  10. BISACODYL. [Concomitant]
     Active Substance: BISACODYL
     Dosage: 2X/DAY AS NEEDED
     Route: 048
  11. SYNTHROID [Concomitant]
     Active Substance: LEVOTHYROXINE SODIUM
     Dosage: 0.075 MG, UNK
     Route: 048
  12. NOVOLOG [Concomitant]
     Active Substance: INSULIN ASPART
     Dosage: 100 MG/ML
  13. COZAAR [Concomitant]
     Active Substance: LOSARTAN POTASSIUM
     Dosage: 50 MG, DAILY
     Route: 048
  14. FLONASE NASL [Concomitant]
     Dosage: UNK
     Route: 045
  15. PSYLLIUM HUSK [Concomitant]
     Active Substance: PSYLLIUM HUSK
     Dosage: UNK
     Route: 048
  16. FASLODEX [Suspect]
     Active Substance: FULVESTRANT
     Dosage: 500 MG,EVERY 30 DAYS
     Route: 030
  17. ALBUTEROL INHL [Concomitant]
     Dosage: UNK, AS NEEDED
  18. THERAGRAN [Concomitant]
     Active Substance: VITAMINS
     Dosage: 1 DF, DAILY
     Route: 048
  19. CALCIUM CARBONATE / VITAMIN D3 [Concomitant]
     Dosage: UNK
     Route: 048
  20. LASIX [Concomitant]
     Active Substance: FUROSEMIDE
     Dosage: 80 MG, DAILY (TWO TAB IN THE AM.)
     Route: 048
  21. NYSTATIN. [Concomitant]
     Active Substance: NYSTATIN
     Dosage: UNK
  22. OMEPRAZOLE. [Concomitant]
     Active Substance: OMEPRAZOLE
     Dosage: UNK
     Route: 048
  23. MICRO-K [Concomitant]
     Active Substance: POTASSIUM CHLORIDE
     Dosage: 8 MEQ, 2X/DAY
     Route: 048
  24. SIMETHICONE [Concomitant]
     Active Substance: DIMETHICONE\SILICON DIOXIDE\SIMETHICONE
     Dosage: 80 MG, UNK
     Route: 048

REACTIONS (17)
  - Condition aggravated [Not Recovered/Not Resolved]
  - Sleep apnoea syndrome [Not Recovered/Not Resolved]
  - Arthritis [Unknown]
  - Blood triglycerides increased [Unknown]
  - Uterine disorder [Not Recovered/Not Resolved]
  - Bursitis [Unknown]
  - High density lipoprotein decreased [Unknown]
  - Weight fluctuation [Unknown]
  - Blood cholesterol increased [Unknown]
  - Blood pressure inadequately controlled [Not Recovered/Not Resolved]
  - Hypothyroidism [Not Recovered/Not Resolved]
  - Cerebrovascular accident [Unknown]
  - Ulcer [Unknown]
  - Depression [Not Recovered/Not Resolved]
  - Depression [Not Recovered/Not Resolved]
  - Dry skin [Unknown]
  - Musculoskeletal pain [Unknown]

NARRATIVE: CASE EVENT DATE: 20110525
